FAERS Safety Report 18143470 (Version 1)
Quarter: 2020Q3

REPORT INFORMATION
  Report Type: Other
  Country: HU (occurrence: HU)
  Receive Date: 20200813
  Receipt Date: 20200813
  Transmission Date: 20201103
  Serious: Yes (Death, Other)
  Sender: FDA-Public Use
  Company Number: HU-ROCHE-2654690

PATIENT

DRUGS (7)
  1. MYCOPHENOLATE MOFETIL. [Suspect]
     Active Substance: MYCOPHENOLATE MOFETIL
     Indication: LUPUS NEPHRITIS
     Route: 065
  2. AZATHIOPRINE. [Suspect]
     Active Substance: AZATHIOPRINE
     Indication: LUPUS NEPHRITIS
     Route: 065
  3. METHYLPREDNISOLONE. [Suspect]
     Active Substance: METHYLPREDNISOLONE
     Indication: LUPUS NEPHRITIS
     Route: 042
  4. RITUXIMAB. [Suspect]
     Active Substance: RITUXIMAB
     Indication: LUPUS NEPHRITIS
     Route: 065
  5. MESNA. [Suspect]
     Active Substance: MESNA
     Indication: LUPUS NEPHRITIS
     Route: 065
  6. CYCLOSPORINE. [Suspect]
     Active Substance: CYCLOSPORINE
     Indication: LUPUS NEPHRITIS
     Route: 065
  7. CYCLOPHOSPHAMIDE. [Suspect]
     Active Substance: CYCLOPHOSPHAMIDE
     Indication: LUPUS NEPHRITIS
     Route: 040

REACTIONS (9)
  - Osteoporosis [Unknown]
  - Venous thrombosis [Recovered/Resolved]
  - Uterine cancer [Fatal]
  - Steroid diabetes [Unknown]
  - Cardiovascular disorder [Fatal]
  - Infection [Fatal]
  - Leukopenia [Unknown]
  - Off label use [Unknown]
  - Intentional product use issue [Unknown]
